FAERS Safety Report 6894084-9 (Version None)
Quarter: 2010Q3

REPORT INFORMATION
  Report Type: 
  Country: None (occurrence: None)
  Receive Date: 20100802
  Receipt Date: 20100719
  Transmission Date: 20110219
  Serious: Yes (Hospitalization, Other)
  Sender: FDA-Public Use
  Company Number: US-ELI_LILLY_AND_COMPANY-US201006004306

PATIENT
  Sex: Female
  Weight: 82.54 kg

DRUGS (10)
  1. FORTEO [Suspect]
     Indication: OSTEOPOROSIS
  2. PAXIL [Concomitant]
     Dosage: 37 MG, DAILY (1/D)
  3. PREVACID [Concomitant]
     Dosage: 5 MG, DAILY (1/D)
  4. ZETIA [Concomitant]
  5. RESTASIS [Concomitant]
     Dosage: UNK, 2/D
  6. TYLENOL (CAPLET) [Concomitant]
  7. CITRACAL [Concomitant]
     Dosage: UNK, 2/D
  8. WELCHOL [Concomitant]
  9. VITAMIN D [Concomitant]
  10. CALCIUM [Concomitant]

REACTIONS (5)
  - ASTHENIA [None]
  - CARDIOVASCULAR DECONDITIONING [None]
  - HYPOAESTHESIA [None]
  - PALPITATIONS [None]
  - SPINAL COLUMN STENOSIS [None]
